FAERS Safety Report 15658695 (Version 1)
Quarter: 2018Q4

REPORT INFORMATION
  Report Type: Report from Study
  Country: FR (occurrence: FR)
  Receive Date: 20181126
  Receipt Date: 20181126
  Transmission Date: 20190205
  Serious: Yes (Other)
  Sender: FDA-Public Use
  Company Number: FR-GILEAD-2018-0376147

PATIENT
  Age: 64 Year
  Sex: Male

DRUGS (47)
  1. SOFOSBUVIR [Suspect]
     Active Substance: SOFOSBUVIR
     Indication: HEPATIC CIRRHOSIS
  2. ZYLORIC [Concomitant]
     Active Substance: ALLOPURINOL
  3. CIALIS [Concomitant]
     Active Substance: TADALAFIL
  4. PREDNISONE. [Concomitant]
     Active Substance: PREDNISONE
  5. INEXIUM [ESOMEPRAZOLE MAGNESIUM] [Concomitant]
     Active Substance: ESOMEPRAZOLE MAGNESIUM
  6. PHOSPHORUS [Concomitant]
     Active Substance: PHOSPHORUS
  7. VENOFER [Concomitant]
     Active Substance: IRON SUCROSE
  8. EUPANTOL [Concomitant]
     Active Substance: PANTOPRAZOLE SODIUM
  9. CHOLECALCIFEROL [Concomitant]
     Active Substance: CHOLECALCIFEROL
  10. FUROSEMIDE. [Concomitant]
     Active Substance: FUROSEMIDE
  11. SOFOSBUVIR [Suspect]
     Active Substance: SOFOSBUVIR
     Indication: HEPATITIS C
     Dosage: 400 MG, QD
     Route: 065
     Dates: start: 20140617, end: 20141208
  12. DAKLINZA [Suspect]
     Active Substance: DACLATASVIR
     Indication: HEPATIC CIRRHOSIS
  13. NEORAL [Concomitant]
     Active Substance: CYCLOSPORINE
  14. SOLUPRED [METHYLPREDNISOLONE SODIUM SUCCINATE] [Concomitant]
  15. SODIUM BICARBONATE. [Concomitant]
     Active Substance: SODIUM BICARBONATE
  16. INSULIN ACT.MC [Concomitant]
  17. CEFTRIAXONE. [Concomitant]
     Active Substance: CEFTRIAXONE
  18. TOCO [Concomitant]
     Active Substance: UNSPECIFIED INGREDIENT
  19. DELURSAN [Concomitant]
     Active Substance: URSODIOL
  20. MOPRAL [OMEPRAZOLE MAGNESIUM] [Concomitant]
  21. ALPRESS [Concomitant]
     Active Substance: PRAZOSIN
  22. MIRCERA [Concomitant]
     Active Substance: METHOXY POLYETHYLENE GLYCOL-EPOETIN BETA
  23. PERFALGAN [Concomitant]
     Active Substance: ACETAMINOPHEN
  24. CELLCEPT [MYCOPHENOLATE MOFETIL HYDROCHLORIDE] [Concomitant]
  25. TACROLIMUS. [Concomitant]
     Active Substance: TACROLIMUS
  26. APROVEL [Concomitant]
     Active Substance: IRBESARTAN
  27. PARACETAMOL [Concomitant]
     Active Substance: ACETAMINOPHEN
  28. BASAL-H-INSULIN [Concomitant]
  29. TIORFAN [Concomitant]
     Active Substance: RACECADOTRIL
  30. IPERTEN [Concomitant]
     Active Substance: MANIDIPINE
  31. LANTUS [Concomitant]
     Active Substance: INSULIN GLARGINE
  32. APIDRA [Concomitant]
     Active Substance: INSULIN GLULISINE
  33. NEFOPAM [Concomitant]
     Active Substance: NEFOPAM
  34. METOCLOPRAMIDE. [Concomitant]
     Active Substance: METOCLOPRAMIDE
  35. ALFUZOSIN [Concomitant]
     Active Substance: ALFUZOSIN
  36. ASPIRIN (E.C.) [Concomitant]
     Active Substance: ASPIRIN
  37. VALSARTAN. [Concomitant]
     Active Substance: VALSARTAN
  38. TEMERIT [Concomitant]
     Active Substance: NEBIVOLOL
  39. PRIMPERAN [Concomitant]
     Active Substance: METOCLOPRAMIDE HYDROCHLORIDE
  40. MYFORTIC [Concomitant]
     Active Substance: MYCOPHENOLATE SODIUM
  41. DAKLINZA [Suspect]
     Active Substance: DACLATASVIR
     Indication: HEPATITIS C
     Dosage: 60 MG, QD
     Route: 065
     Dates: start: 20140617, end: 20141208
  42. EZETROL [Concomitant]
     Active Substance: EZETIMIBE
  43. LASILIX FAIBLE [Concomitant]
     Active Substance: FUROSEMIDE
  44. EPREX [Concomitant]
     Active Substance: ERYTHROPOIETIN
  45. NOVORAPID [Concomitant]
     Active Substance: INSULIN ASPART
  46. NEBIVOLOL. [Concomitant]
     Active Substance: NEBIVOLOL
  47. PANTOPRAZOLE [Concomitant]
     Active Substance: PANTOPRAZOLE

REACTIONS (1)
  - Hepatitis B reactivation [Recovering/Resolving]

NARRATIVE: CASE EVENT DATE: 20170201
